FAERS Safety Report 16095404 (Version 3)
Quarter: 2019Q3

REPORT INFORMATION
  Report Type: Spontaneous
  Country: US (occurrence: US)
  Receive Date: 20190320
  Receipt Date: 20190815
  Transmission Date: 20191004
  Serious: Yes (Hospitalization, Other)
  Sender: FDA-Public Use
  Company Number: US-PFIZER INC-2019082382

PATIENT
  Age: 84 Year
  Sex: Male
  Weight: 70 kg

DRUGS (4)
  1. LYRICA [Suspect]
     Active Substance: PREGABALIN
     Dosage: 150 MG, UNK
  2. LYRICA [Suspect]
     Active Substance: PREGABALIN
     Dosage: 150 MG, 3X/DAY [1 CAPSULE]
  3. LYRICA [Suspect]
     Active Substance: PREGABALIN
     Indication: LIMB INJURY
     Dosage: 300 MG, 1X/DAY (2 CAPSULES AT BEDTIME)
     Route: 048
  4. LYRICA [Suspect]
     Active Substance: PREGABALIN
     Dosage: UNK, AS NEEDED (TAKES ANOTHER ONE IF NEEDED)

REACTIONS (17)
  - Gait disturbance [Unknown]
  - Malaise [Unknown]
  - Vision blurred [Unknown]
  - Tremor [Unknown]
  - Hypoacusis [Unknown]
  - Renal disorder [Unknown]
  - Cardiac disorder [Unknown]
  - Nerve compression [Unknown]
  - Fall [Unknown]
  - Lower limb fracture [Unknown]
  - Intentional product misuse [Unknown]
  - Feeling cold [Unknown]
  - Peripheral coldness [Unknown]
  - Lower gastrointestinal haemorrhage [Unknown]
  - Product dose omission [Unknown]
  - Ear pain [Unknown]
  - Loss of consciousness [Unknown]
